FAERS Safety Report 6493208-5 (Version None)
Quarter: 2009Q4

REPORT INFORMATION
  Report Type: 
  Country: None (occurrence: None)
  Receive Date: 20091211
  Receipt Date: 20091211
  Transmission Date: 20100525
  Serious: No
  Sender: FDA-Public Use
  Company Number: None

PATIENT
  Age: 53 Year
  Sex: Female
  Weight: 111.1313 kg

DRUGS (3)
  1. CYMBALTA [Suspect]
     Indication: DEPRESSION
     Dosage: 90MG ONCE DAILY PO
     Route: 048
     Dates: start: 20080301, end: 20091209
  2. CYMBALTA [Suspect]
     Indication: PAIN
     Dosage: 90MG ONCE DAILY PO
     Route: 048
     Dates: start: 20080301, end: 20091209
  3. CYMBALTA [Suspect]

REACTIONS (13)
  - ABNORMAL DREAMS [None]
  - ALOPECIA [None]
  - APHONIA [None]
  - CLUMSINESS [None]
  - DIARRHOEA [None]
  - FEELING ABNORMAL [None]
  - GASTROOESOPHAGEAL REFLUX DISEASE [None]
  - INSOMNIA [None]
  - MUSCLE SPASMS [None]
  - PAIN IN EXTREMITY [None]
  - PRURITUS [None]
  - SWELLING [None]
  - VISION BLURRED [None]
